FAERS Safety Report 5641090-8 (Version None)
Quarter: 2008Q1

REPORT INFORMATION
  Report Type: 
  Country: None (occurrence: None)
  Receive Date: 20080227
  Receipt Date: 20070116
  Transmission Date: 20080703
  Serious: No
  Sender: FDA-Public Use
  Company Number: A0635624A

PATIENT
  Age: 41 Year
  Sex: Female

DRUGS (2)
  1. NICORETTE (MINT) [Suspect]
     Indication: DRUG USE FOR UNKNOWN INDICATION
     Dates: start: 20070106, end: 20070112
  2. NICODERM CQ [Suspect]
     Indication: DRUG USE FOR UNKNOWN INDICATION
     Route: 062
     Dates: start: 20020101

REACTIONS (8)
  - DRUG INEFFECTIVE [None]
  - GAIT DISTURBANCE [None]
  - HYPERSENSITIVITY [None]
  - NICOTINE DEPENDENCE [None]
  - PHARMACEUTICAL PRODUCT COMPLAINT [None]
  - RASH PAPULAR [None]
  - RASH PRURITIC [None]
  - URTICARIA [None]
